FAERS Safety Report 9671540 (Version 1)
Quarter: 2013Q4

REPORT INFORMATION
  Report Type: Spontaneous
  Country: CO (occurrence: None)
  Receive Date: 20131104
  Receipt Date: 20131104
  Transmission Date: 20140711
  Serious: Yes (Hospitalization)
  Sender: FDA-Public Use
  Company Number: DSU-2013-04957

PATIENT
  Age: 56 Year
  Sex: Female

DRUGS (1)
  1. OLMETEC HCT [Suspect]
     Route: 048

REACTIONS (1)
  - Nephrolithiasis [None]
